FAERS Safety Report 13027022 (Version 3)
Quarter: 2017Q1

REPORT INFORMATION
  Report Type: Report from Study
  Country: US (occurrence: US)
  Receive Date: 20161214
  Receipt Date: 20170320
  Transmission Date: 20170428
  Serious: Yes (Disabling, Other)
  Sender: FDA-Public Use
  Company Number: US-REGENERON PHARMACEUTICALS, INC.-2016-24846

PATIENT

DRUGS (2)
  1. EYLEA [Suspect]
     Active Substance: AFLIBERCEPT
     Indication: NEOVASCULAR AGE-RELATED MACULAR DEGENERATION
     Dosage: MONTHLY, THEN BIMONTHLY, RIGHT EYE
     Route: 031
     Dates: start: 20151221
  2. EYLEA [Suspect]
     Active Substance: AFLIBERCEPT
     Indication: CHOROIDAL NEOVASCULARISATION
     Dosage: MONTHLY, THEN BIMONTHLY, RIGHT EYE
     Route: 031
     Dates: start: 20160922, end: 20160922

REACTIONS (2)
  - Visual acuity reduced [Not Recovered/Not Resolved]
  - Blindness transient [Not Recovered/Not Resolved]

NARRATIVE: CASE EVENT DATE: 20160614
